FAERS Safety Report 17411381 (Version 1)
Quarter: 2020Q1

REPORT INFORMATION
  Report Type: Spontaneous
  Country: US (occurrence: US)
  Receive Date: 20200212
  Receipt Date: 20200212
  Transmission Date: 20200409
  Serious: No
  Sender: FDA-Public Use
  Company Number: US-MICRO LABS LIMITED-ML2020-00090

PATIENT
  Age: 69 Year
  Sex: Male

DRUGS (21)
  1. RISEDRONATE [Concomitant]
     Active Substance: RISEDRONATE SODIUM
  2. MELATONIN [Concomitant]
     Active Substance: MELATONIN
  3. DALFAMPRIDINE EXTENDED-RELEASE TABLETS, 10 MG [Suspect]
     Active Substance: DALFAMPRIDINE
     Indication: GAIT DISTURBANCE
     Dosage: 10 MG BID ORAL TO IMPROVE WALKING.
     Route: 048
  4. ASA [Concomitant]
     Active Substance: ASPIRIN
  5. ZOLPIDEM [Concomitant]
     Active Substance: ZOLPIDEM TARTRATE
  6. ASPIRIN. [Concomitant]
     Active Substance: ASPIRIN
  7. ZYRTEC [Concomitant]
     Active Substance: CETIRIZINE HYDROCHLORIDE
  8. JALYN [Concomitant]
     Active Substance: DUTASTERIDE\TAMSULOSIN HYDROCHLORIDE
  9. ALEVE [Concomitant]
     Active Substance: NAPROXEN SODIUM
     Dosage: ALEVE 220 MG
  10. EZETIMIBE. [Concomitant]
     Active Substance: EZETIMIBE
  11. ROPINIROLE. [Concomitant]
     Active Substance: ROPINIROLE
  12. CLONAZEPAM. [Concomitant]
     Active Substance: CLONAZEPAM
  13. CARVEDILOL. [Concomitant]
     Active Substance: CARVEDILOL
  14. TRAZODONE [Concomitant]
     Active Substance: TRAZODONE HYDROCHLORIDE
  15. LISINOPRIL. [Concomitant]
     Active Substance: LISINOPRIL
  16. AMPYRA [Suspect]
     Active Substance: DALFAMPRIDINE
     Indication: MULTIPLE SCLEROSIS
     Dosage: 10 MG EVERY 12 HOURS FOR MS
     Dates: start: 20160520
  17. TECFIDERA [Suspect]
     Active Substance: DIMETHYL FUMARATE
     Indication: MULTIPLE SCLEROSIS
     Dosage: AT 240 MG, ORALLY, BID FOR MS
     Route: 048
     Dates: start: 20140501
  18. ALLEGRA [Concomitant]
     Active Substance: FEXOFENADINE HYDROCHLORIDE
  19. LEVOTHYROXINE SODIUM. [Concomitant]
     Active Substance: LEVOTHYROXINE SODIUM
  20. ROSUVASTATIN. [Concomitant]
     Active Substance: ROSUVASTATIN
  21. ZETIA [Concomitant]
     Active Substance: EZETIMIBE

REACTIONS (1)
  - Fall [Recovered/Resolved]

NARRATIVE: CASE EVENT DATE: 20170406
